FAERS Safety Report 13960241 (Version 7)
Quarter: 2018Q2

REPORT INFORMATION
  Report Type: Spontaneous
  Country: IT (occurrence: IT)
  Receive Date: 20170912
  Receipt Date: 20180430
  Transmission Date: 20180711
  Serious: Yes (Hospitalization)
  Sender: FDA-Public Use
  Company Number: IT-PFIZER INC-2017393563

PATIENT
  Age: 77 Year
  Sex: Male

DRUGS (7)
  1. CARDIOASPIRIN [Suspect]
     Active Substance: ASPIRIN
     Dosage: UNK
     Route: 048
  2. DELORAZEPAM [Suspect]
     Active Substance: DELORAZEPAM
     Dosage: UNK
     Route: 065
  3. ATENOLOL. [Suspect]
     Active Substance: ATENOLOL
     Dosage: UNK
     Route: 048
  4. SPIRIVA [Concomitant]
     Active Substance: TIOTROPIUM BROMIDE MONOHYDRATE
     Dosage: UNK
     Route: 065
  5. DAPAROX [Concomitant]
     Active Substance: PAROXETINE HYDROCHLORIDE
     Dosage: UNK
     Route: 065
  6. RAMIPRIL. [Suspect]
     Active Substance: RAMIPRIL
     Dosage: UNK
     Route: 048
  7. XENAZINA [Suspect]
     Active Substance: TETRABENAZINE
     Dosage: 3 DF, DAILY
     Route: 065
     Dates: start: 20120822, end: 20170810

REACTIONS (5)
  - Irritability [Recovering/Resolving]
  - Impulsive behaviour [Recovering/Resolving]
  - Depressed mood [Recovering/Resolving]
  - Anxiety [Recovering/Resolving]
  - Aggression [Recovering/Resolving]

NARRATIVE: CASE EVENT DATE: 20170628
